FAERS Safety Report 10039516 (Version 1)
Quarter: 2014Q1

REPORT INFORMATION
  Report Type: Spontaneous
  Country: JP (occurrence: JP)
  Receive Date: 20140326
  Receipt Date: 20140326
  Transmission Date: 20141002
  Serious: Yes (Hospitalization)
  Sender: FDA-Public Use
  Company Number: JP-EISAI INC-E2090-03178-SPO-JP

PATIENT
  Age: 10 Year
  Sex: Female

DRUGS (8)
  1. EXCEGRAN [Suspect]
     Indication: EPILEPSY
     Route: 048
     Dates: start: 20090517, end: 20090527
  2. THIAMINE HYDROCHLORIDE [Concomitant]
     Indication: MITOCHONDRIAL CYTOPATHY
     Dosage: 99.9 MG/DAY
     Route: 048
     Dates: start: 20070708, end: 20090618
  3. RIVOTRIL [Concomitant]
     Indication: EPILEPSY
     Dosage: 1 MG/DAY
     Route: 048
     Dates: start: 20071103
  4. NEUQUINON [Concomitant]
     Indication: MITOCHONDRIAL CYTOPATHY
     Dosage: 30 MG/DAY
     Route: 048
     Dates: start: 20080909, end: 20090608
  5. L-ARGININE HYDROCHLORIDE [Concomitant]
     Indication: MITOCHONDRIAL CYTOPATHY
     Dosage: 6.6 GRAMS/DAY
     Route: 048
     Dates: start: 20090508, end: 20090813
  6. MIDAZOLAM [Concomitant]
     Indication: EPILEPSY
     Dosage: 24 MG/DAY
     Dates: start: 20090520, end: 20090525
  7. MIDAZOLAM [Concomitant]
     Dosage: UNKNOWN
     Route: 041
     Dates: start: 20090517, end: 200905
  8. RADICUT [Concomitant]
     Indication: CEREBRAL INFARCTION
     Dosage: 30 MG/DAY
     Dates: start: 20090521, end: 20090529

REACTIONS (1)
  - Drug reaction with eosinophilia and systemic symptoms [Recovered/Resolved]
